FAERS Safety Report 15359606 (Version 2)
Quarter: 2018Q3

REPORT INFORMATION
  Report Type: Spontaneous
  Country: GB (occurrence: GB)
  Receive Date: 20180907
  Receipt Date: 20180926
  Transmission Date: 20181010
  Serious: Yes (Life-Threatening, Hospitalization, Disabling, Congenital Anomaly)
  Sender: FDA-Public Use
  Company Number: GB-TEVA-2018-GB-952228

PATIENT
  Age: 1 Week
  Sex: Male
  Weight: 1.09 kg

DRUGS (2)
  1. LAMOTRIGINE. [Suspect]
     Active Substance: LAMOTRIGINE
     Indication: GENERALISED TONIC-CLONIC SEIZURE
     Dosage: 400 MILLIGRAM DAILY;
     Route: 064
  2. FOLIC ACID. [Concomitant]
     Active Substance: FOLIC ACID
     Dosage: 5 MILLIGRAM DAILY;
     Route: 064

REACTIONS (6)
  - Neonatal respiratory distress syndrome [Unknown]
  - Supraventricular tachycardia [Recovered/Resolved]
  - Cyanosis [Unknown]
  - Intraventricular haemorrhage neonatal [Unknown]
  - Foetal exposure during pregnancy [Unknown]
  - Cerebral ventricle dilatation [Unknown]
